FAERS Safety Report 8157895-8 (Version None)
Quarter: 2012Q1

REPORT INFORMATION
  Report Type: 
  Country: None (occurrence: None)
  Receive Date: 20120222
  Receipt Date: 20120214
  Transmission Date: 20120608
  Serious: Yes (Hospitalization)
  Sender: FDA-Public Use
  Company Number: PHHY2012JP013574

PATIENT
  Sex: Male
  Weight: 41 kg

DRUGS (34)
  1. CERTICAN [Suspect]
     Dosage: 1.25 MG, UNK
     Route: 048
     Dates: start: 20110409, end: 20110413
  2. PROGRAF [Suspect]
     Dosage: 2.0 MG, UNK
     Route: 048
     Dates: start: 20110223, end: 20110225
  3. MEROPENEM [Concomitant]
     Dosage: 2.0 G, UNK
     Route: 042
  4. VENOGLOBULIN [Concomitant]
     Indication: EPSTEIN-BARR VIRAEMIA
     Dosage: 5 G, UNK
     Dates: start: 20110308, end: 20110413
  5. CERTICAN [Suspect]
     Dosage: 0.75 MG, UNK
     Route: 048
     Dates: start: 20110220, end: 20110221
  6. PROGRAF [Suspect]
     Dosage: 2.0 MG, UNK
     Route: 048
     Dates: start: 20110304, end: 20110306
  7. TANNALBIN [Concomitant]
     Indication: DIARRHOEA
     Dosage: 2 G, UNK
     Route: 048
     Dates: start: 20110216, end: 20110228
  8. PRAVASTATIN SODIUM [Concomitant]
     Dosage: 5 MG, UNK
     Route: 048
     Dates: start: 20100907
  9. EMPECID [Concomitant]
     Dosage: 10 MG, UNK
     Route: 048
     Dates: start: 20100907
  10. MEROPENEM [Concomitant]
     Indication: INFECTION PROPHYLAXIS
     Dosage: 1.5 G, UNK
     Route: 042
     Dates: start: 20110222
  11. RENIVACE [Concomitant]
     Dosage: 2.5 MG, UNK
     Route: 048
     Dates: start: 20100911
  12. PROGRAF [Suspect]
     Dosage: 1.7 MG, UNK
     Route: 048
     Dates: start: 20110307, end: 20110308
  13. MYCOPHENOLATE MOFETIL (CELLCEPT) [Suspect]
     Dosage: UNK UKN, UNK
     Route: 048
     Dates: end: 20110201
  14. ADSORBIN [Concomitant]
     Indication: DIARRHOEA
     Dosage: 2 G, UNK
     Route: 048
     Dates: start: 20110216, end: 20110228
  15. CERTICAN [Suspect]
     Indication: HEART TRANSPLANT
     Dosage: 1.5 MG, UNK
     Route: 048
     Dates: start: 20110218, end: 20110219
  16. MEROPENEM [Concomitant]
     Dosage: 1.0 G, UNK
     Route: 042
     Dates: end: 20110302
  17. LAC B [Concomitant]
     Indication: DIARRHOEA
     Dosage: 6 G, UNK
     Route: 048
     Dates: start: 20110216
  18. PREDNISOLONE [Concomitant]
     Indication: HEART TRANSPLANT
     Dosage: 10 MG, UNK
     Route: 048
     Dates: start: 20101021
  19. CERTICAN [Suspect]
     Dosage: 1.5 MG, UNK
     Route: 048
     Dates: start: 20110122, end: 20110225
  20. CERTICAN [Suspect]
     Dosage: 0.5 MG, UNK
     Route: 048
     Dates: start: 20110228, end: 20110302
  21. CERTICAN [Suspect]
     Dosage: 1.0 MG, UNK
     Route: 048
     Dates: start: 20110304, end: 20110308
  22. CERTICAN [Suspect]
     Dosage: 0.75 MG, UNK
     Route: 048
     Dates: start: 20110414, end: 20110414
  23. PROGRAF [Suspect]
     Dosage: 0.8 MG, UNK
     Route: 048
     Dates: start: 20110409, end: 20110413
  24. CEFDINIR [Concomitant]
     Indication: INFECTION PROPHYLAXIS
     Dosage: 300 MG, UNK
     Route: 048
     Dates: start: 20110216
  25. CEFDINIR [Concomitant]
     Dosage: 100 MG, UNK
     Route: 048
     Dates: end: 20110222
  26. VALGANCICLOVIR [Concomitant]
     Indication: EPSTEIN-BARR VIRAEMIA
     Dosage: 450 MG, UNK
     Route: 048
     Dates: start: 20110324, end: 20110401
  27. CERTICAN [Suspect]
     Dosage: 0.75 MG, UNK
     Route: 048
     Dates: start: 20110303, end: 20110303
  28. PROGRAF [Suspect]
     Indication: HEART TRANSPLANT
     Dosage: 2.2 MG, UNK
     Route: 048
     Dates: start: 20110208, end: 20110222
  29. PROGRAF [Suspect]
     Dosage: 2.4 MG, UNK
     Route: 048
     Dates: start: 20110226, end: 20110302
  30. PROGRAF [Suspect]
     Dosage: 1.6 MG, UNK
     Route: 048
     Dates: start: 20110414
  31. ALENDRONATE SODIUM [Concomitant]
     Dosage: UNK UKN, UNK
     Route: 048
     Dates: start: 20101023
  32. PROGRAF [Suspect]
     Dosage: 2.2 MG, UNK
     Route: 048
     Dates: start: 20110303, end: 20110303
  33. PROGRAF [Suspect]
     Dosage: 1.5 MG, UNK
     Route: 048
     Dates: start: 20110309, end: 20110309
  34. PROGRAF [Suspect]
     Dosage: 1.0 MG, UNK
     Route: 048
     Dates: start: 20110310, end: 20110408

REACTIONS (1)
  - GRANULOCYTOPENIA [None]
